FAERS Safety Report 5080437-0 (Version None)
Quarter: 2006Q3

REPORT INFORMATION
  Report Type: 
  Country: None (occurrence: None)
  Receive Date: 20060815
  Receipt Date: 20010801
  Transmission Date: 20061208
  Serious: Yes (Hospitalization)
  Sender: FDA-Public Use
  Company Number: FR-SOLVAY-00201004437

PATIENT
  Age: 56 Year
  Sex: Male

DRUGS (4)
  1. ASPIRIN [Concomitant]
     Indication: ILL-DEFINED DISORDER
     Dosage: DAILY DOSE: UNK. FREQUENCY:UNKNOWN
     Route: 065
     Dates: start: 19970804
  2. PERINDOPRIL ERBUMINE [Suspect]
     Indication: LEFT VENTRICULAR FAILURE
     Dosage: DAILY DOSE: 4 MG.
     Route: 048
     Dates: start: 19971210, end: 19980318
  3. SIMVASTATIN [Concomitant]
     Indication: ILL-DEFINED DISORDER
     Dosage: DAILY DOSE: UNK. FREQUENCY:UNKNOWN
     Route: 065
     Dates: start: 19970816
  4. RANITIDINE [Concomitant]
     Indication: ILL-DEFINED DISORDER
     Dosage: DAILY DOSE: UNK. FREQUENCY:UNKNOWN
     Route: 065
     Dates: start: 19971209

REACTIONS (1)
  - CORONARY ARTERY DISEASE [None]
